FAERS Safety Report 23222061 (Version 3)
Quarter: 2024Q1

REPORT INFORMATION
  Report Type: Report from Study
  Country: US (occurrence: US)
  Receive Date: 20231123
  Receipt Date: 20240308
  Transmission Date: 20240409
  Serious: Yes (Hospitalization, Other)
  Sender: FDA-Public Use
  Company Number: US-ARGENX-2023-ARGX-US003400

PATIENT

DRUGS (6)
  1. VYVGART [Suspect]
     Active Substance: EFGARTIGIMOD ALFA-FCAB
     Indication: Myasthenia gravis
     Dosage: 10 MG/KG
     Route: 042
     Dates: start: 20231004
  2. VYVGART [Suspect]
     Active Substance: EFGARTIGIMOD ALFA-FCAB
     Dosage: 671 MG, 1/WEEK FOR 4 WEEKS; THEN REPEAT 4 WEEKLY INFUSIONS EVERY 12 WEEKS
     Route: 042
     Dates: start: 20230929
  3. ACETAMINOPHEN\DEXTROMETHORPHAN HYDROBROMIDE\PSEUDOEPHEDRINE [Concomitant]
     Active Substance: ACETAMINOPHEN\DEXTROMETHORPHAN HYDROBROMIDE\PSEUDOEPHEDRINE
     Indication: Nasopharyngitis
     Dosage: UNK
     Route: 065
  4. DEXTROSE\SODIUM CHLORIDE [Concomitant]
     Active Substance: DEXTROSE\SODIUM CHLORIDE
     Indication: Catheter management
     Dosage: 20 ML
  5. SOLU-MEDROL [Concomitant]
     Active Substance: METHYLPREDNISOLONE SODIUM SUCCINATE
     Indication: Product used for unknown indication
     Route: 042
  6. BENADRYL [Concomitant]
     Active Substance: DIPHENHYDRAMINE HYDROCHLORIDE
     Indication: Product used for unknown indication
     Route: 042

REACTIONS (16)
  - Myasthenia gravis crisis [Unknown]
  - Hemiparesis [Unknown]
  - Oropharyngeal pain [Unknown]
  - Malaise [Unknown]
  - Pyrexia [Unknown]
  - Paraesthesia [Unknown]
  - Blood pressure increased [Unknown]
  - Heart rate increased [Unknown]
  - Pallor [Unknown]
  - Cold sweat [Unknown]
  - Brain fog [Unknown]
  - Lung disorder [Unknown]
  - Nasopharyngitis [Unknown]
  - Dyspnoea [Unknown]
  - Upper respiratory tract infection [Unknown]
  - Treatment delayed [Unknown]

NARRATIVE: CASE EVENT DATE: 20231025
